FAERS Safety Report 9375889 (Version 2)
Quarter: 2013Q3

REPORT INFORMATION
  Report Type: Spontaneous
  Country: BR (occurrence: BR)
  Receive Date: 20130628
  Receipt Date: 20130718
  Transmission Date: 20140515
  Serious: Yes (Hospitalization, Other)
  Sender: FDA-Public Use
  Company Number: BR-ABBOTT-13P-020-1109415-00

PATIENT
  Age: 59 Year
  Sex: Female
  Weight: 65 kg

DRUGS (7)
  1. HUMIRA [Suspect]
     Indication: PSORIATIC ARTHROPATHY
     Route: 058
     Dates: start: 20130523
  2. LEXAPRO [Concomitant]
     Indication: BIPOLAR DISORDER
     Route: 048
     Dates: start: 2011
  3. DEPAKOTE [Concomitant]
     Indication: BIPOLAR DISORDER
     Route: 048
     Dates: start: 2011
  4. LOSARTAN [Concomitant]
     Indication: BLOOD PRESSURE
     Route: 048
     Dates: start: 2011
  5. AMLODIPINE [Concomitant]
     Indication: BLOOD PRESSURE
     Route: 048
     Dates: start: 2011
  6. GLUCOFORMIN [Concomitant]
     Indication: DIABETES MELLITUS
     Route: 048
  7. LIBIAM [Concomitant]
     Indication: HORMONE REPLACEMENT THERAPY
     Route: 048

REACTIONS (2)
  - Epilepsy [Unknown]
  - Syncope [Recovered/Resolved]
